FAERS Safety Report 11289440 (Version 1)
Quarter: 2015Q3

REPORT INFORMATION
  Report Type: Spontaneous
  Country: US (occurrence: US)
  Receive Date: 20150721
  Receipt Date: 20150721
  Transmission Date: 20151125
  Serious: No
  Sender: FDA-Public Use
  Company Number: US-GALDERMA-US15001448

PATIENT
  Age: 33 Year
  Sex: Male

DRUGS (5)
  1. NEUTROGENA SUNSCREEN SPF 50 [Concomitant]
     Indication: PROPHYLAXIS AGAINST SOLAR RADIATION
     Route: 061
  2. RETIN-A (TRETINOIN TOPICAL) [Concomitant]
     Indication: ACNE CYSTIC
     Route: 061
  3. ORACEA [Suspect]
     Active Substance: DOXYCYCLINE
     Indication: ACNE CYSTIC
     Route: 061
     Dates: start: 20150315, end: 20150316
  4. CETAPHIL [Concomitant]
     Active Substance: AVOBENZONE\OCTOCRYLENE\TRICLOSAN
     Indication: THERAPEUTIC SKIN CARE TOPICAL
     Route: 061
  5. NEUTROGENA MOISTURIZER WITH SUNSCREEN SPF 15 [Concomitant]
     Indication: PROPHYLAXIS AGAINST SOLAR RADIATION
     Route: 061

REACTIONS (2)
  - No adverse event [Unknown]
  - Product use issue [Unknown]
